FAERS Safety Report 5306607-1 (Version None)
Quarter: 2007Q2

REPORT INFORMATION
  Report Type: 
  Country: None (occurrence: None)
  Receive Date: 20070424
  Receipt Date: 20070416
  Transmission Date: 20071010
  Serious: Yes (Other)
  Sender: FDA-Public Use
  Company Number: US-PFIZER INC-2007016383

PATIENT
  Sex: Male
  Weight: 89.8 kg

DRUGS (4)
  1. SUTENT [Suspect]
     Indication: GASTROINTESTINAL STROMAL TUMOUR
     Dates: start: 20070204, end: 20070228
  2. ATENOLOL [Concomitant]
     Dosage: DAILY DOSE:25MG
  3. HYDROCHLOROTHIAZIDE [Concomitant]
     Dosage: DAILY DOSE:25MG
  4. GLEEVEC [Concomitant]

REACTIONS (3)
  - APHONIA [None]
  - BACTERIAL INFECTION [None]
  - MALAISE [None]
